FAERS Safety Report 17246902 (Version 3)
Quarter: 2022Q2

REPORT INFORMATION
  Report Type: Spontaneous
  Country: US (occurrence: US)
  Receive Date: 20200108
  Receipt Date: 20220623
  Transmission Date: 20220721
  Serious: No
  Sender: FDA-Public Use
  Company Number: US-PFIZER INC-2020005097

PATIENT
  Age: 68 Year
  Sex: Male

DRUGS (1)
  1. XALKORI [Suspect]
     Active Substance: CRIZOTINIB
     Indication: Anaplastic large-cell lymphoma
     Dosage: 250 MG

REACTIONS (1)
  - Lymphoedema [Recovered/Resolved]
